FAERS Safety Report 8692469 (Version 3)
Quarter: 2012Q4

REPORT INFORMATION
  Report Type: Report from Study
  Country: BE (occurrence: BE)
  Receive Date: 20120730
  Receipt Date: 20121030
  Transmission Date: 20130627
  Serious: Yes (Life-Threatening, Hospitalization)
  Sender: FDA-Public Use
  Company Number: BE-BRISTOL-MYERS SQUIBB COMPANY-16577868

PATIENT
  Age: 69 Year
  Sex: Male
  Weight: 71 kg

DRUGS (2)
  1. CETUXIMAB [Suspect]
     Indication: COLORECTAL CANCER METASTATIC
     Dosage: Last inf on 10apr12
No of inf 4
     Route: 042
     Dates: start: 20120320, end: 20120410
  2. IRINOTECAN HCL [Suspect]
     Indication: COLORECTAL CANCER METASTATIC
     Dosage: No of inf 2
     Route: 042
     Dates: start: 20120320, end: 20120403

REACTIONS (2)
  - Pulmonary embolism [Recovered/Resolved]
  - Performance status decreased [Not Recovered/Not Resolved]
